FAERS Safety Report 5929850-7 (Version None)
Quarter: 2008Q4

REPORT INFORMATION
  Report Type: 
  Country: None (occurrence: None)
  Receive Date: 20081024
  Receipt Date: 20081013
  Transmission Date: 20090506
  Serious: Yes (Other)
  Sender: FDA-Public Use
  Company Number: LB-ROCHE-591304

PATIENT
  Age: 60 Year
  Sex: Male

DRUGS (1)
  1. XELODA [Suspect]
     Indication: METASTATIC GASTRIC CANCER
     Route: 048
     Dates: start: 20080801, end: 20080801

REACTIONS (3)
  - BLOOD BILIRUBIN INCREASED [None]
  - METASTASES TO LIVER [None]
  - TRANSAMINASES INCREASED [None]
